FAERS Safety Report 9859879 (Version 2)
Quarter: 2014Q1

REPORT INFORMATION
  Report Type: Spontaneous
  Country: US (occurrence: US)
  Receive Date: 20140131
  Receipt Date: 20140226
  Transmission Date: 20141002
  Serious: No
  Sender: FDA-Public Use
  Company Number: US-PFIZER INC-2014028932

PATIENT
  Age: 55 Year
  Sex: Female
  Weight: 89.8 kg

DRUGS (3)
  1. LYRICA [Suspect]
     Indication: CONVULSION
     Dosage: 75 MG, 2X/DAY
     Route: 048
     Dates: start: 200701
  2. LYRICA [Suspect]
     Indication: EPILEPSY
     Dosage: 75 MG, 2X/DAY
     Route: 048
     Dates: start: 201011
  3. LYRICA [Suspect]
     Indication: PAIN

REACTIONS (2)
  - Renal cyst [Unknown]
  - Blood cholesterol increased [Unknown]
